FAERS Safety Report 5717249-8 (Version None)
Quarter: 2008Q2

REPORT INFORMATION
  Report Type: 
  Country: None (occurrence: None)
  Receive Date: 20080423
  Receipt Date: 20080414
  Transmission Date: 20081010
  Serious: Yes (Hospitalization, Other)
  Sender: FDA-Public Use
  Company Number: 2008-00670

PATIENT
  Age: 81 Year
  Sex: Male
  Weight: 81.6 kg

DRUGS (17)
  1. VELCADE [Suspect]
     Indication: MULTIPLE MYELOMA
     Dosage: 1.00 MG/M2
     Dates: start: 20070501
  2. REVLIMID [Suspect]
     Indication: MULTIPLE MYELOMA
     Dosage: 20.00MG, ORAL
     Route: 048
     Dates: start: 20070501
  3. DEXAMETHASONE TAB [Suspect]
     Indication: MULTIPLE MYELOMA
     Dosage: 10.00 MG, ORAL
     Route: 048
     Dates: start: 20070501
  4. ACYCLOVIR [Concomitant]
  5. BACTRIUM DS (SULFAMETHOXAZOLE, TRIMETHOPRIM) [Concomitant]
  6. FERRO-SEQUELS (FERROUS FUMARATE, DOCUSATE SODIUM) [Concomitant]
  7. FLECAINIDE ACETATE [Concomitant]
  8. METOPROLOL TARTRATE [Concomitant]
  9. MYCELEX [Concomitant]
  10. OCUVITE (TOCOPHEROL, RETINOL) [Concomitant]
  11. OMEGA-3 TRIGLYCERIDES (OMEGA-3 TRIGLYCERIDES) [Concomitant]
  12. PREVACID [Concomitant]
  13. TRIAMCINOLONE [Concomitant]
  14. ASCORBIC ACID [Concomitant]
  15. ASPIRIN [Concomitant]
  16. EXTRA STRENGTH TYLENOL [Concomitant]
  17. CLOTRIMAZOLE [Concomitant]

REACTIONS (11)
  - ATELECTASIS [None]
  - ATRIAL FIBRILLATION [None]
  - ATRIAL FLUTTER [None]
  - ATRIOVENTRICULAR BLOCK [None]
  - CHEST PAIN [None]
  - DRUG DOSE OMISSION [None]
  - HEART RATE INCREASED [None]
  - HYPOTENSION [None]
  - PLATELET COUNT DECREASED [None]
  - VENTRICULAR EXTRASYSTOLES [None]
  - VENTRICULAR TACHYCARDIA [None]
